FAERS Safety Report 5424821-1 (Version None)
Quarter: 2007Q3

REPORT INFORMATION
  Report Type: 
  Country: None (occurrence: None)
  Receive Date: 20070822
  Receipt Date: 20070813
  Transmission Date: 20080115
  Serious: Yes (Death)
  Sender: FDA-Public Use
  Company Number: 2007US001926

PATIENT
  Sex: Female

DRUGS (1)
  1. PROGRAF [Suspect]
     Indication: OFF LABEL USE
     Dosage: 0.5 MG, BID
     Dates: start: 20060831, end: 20070601

REACTIONS (1)
  - ACUTE MYELOID LEUKAEMIA [None]
